FAERS Safety Report 4320328-3 (Version None)
Quarter: 2004Q1

REPORT INFORMATION
  Report Type: 
  Country: None (occurrence: None)
  Receive Date: 20040317
  Receipt Date: 20040301
  Transmission Date: 20041129
  Serious: Yes (Hospitalization)
  Sender: FDA-Public Use
  Company Number: DSA_24054_2004

PATIENT
  Age: 90 Year
  Sex: Female

DRUGS (10)
  1. LORAZEPAM [Suspect]
     Dosage: 1 MG QD PO
     Route: 048
     Dates: end: 20040120
  2. ALDACTAZINE [Suspect]
     Dosage: 1 TAB 3XWK PO
     Route: 048
     Dates: end: 20040120
  3. CALCIUM [Suspect]
     Dates: end: 20040120
  4. COLECALCIFEROL [Suspect]
     Dates: end: 20040120
  5. COVERSYL [Suspect]
     Dosage: 4 MG QD PO
     Route: 048
     Dates: end: 20040120
  6. KALEORID [Suspect]
     Dates: end: 20040120
  7. LIPANTHYL [Suspect]
     Dosage: 200 MG QD PO
     Route: 048
     Dates: end: 20040120
  8. MONICOR L.P. [Suspect]
     Dates: end: 20040120
  9. NEO-MERCAZOLE TAB [Suspect]
     Dosage: 20 MG QD PO
     Route: 048
     Dates: start: 20031210, end: 20040120
  10. SOTALEX [Suspect]
     Dosage: 40 MG TID PO
     Route: 048

REACTIONS (3)
  - AGRANULOCYTOSIS [None]
  - CHOLELITHIASIS [None]
  - JAUNDICE CHOLESTATIC [None]
